FAERS Safety Report 19770354 (Version 1)
Quarter: 2021Q3

REPORT INFORMATION
  Report Type: Spontaneous
  Country: US (occurrence: US)
  Receive Date: 20210901
  Receipt Date: 20210901
  Transmission Date: 20211014
  Serious: No
  Sender: FDA-Public Use
  Company Number: US-DRREDDYS-SPO/USA/21/0139569

PATIENT
  Age: 23 Year
  Sex: Female

DRUGS (2)
  1. ZENATANE [Suspect]
     Active Substance: ISOTRETINOIN
     Dosage: RMA ISSUE DATE: 22/NOVEMBER/2020 2:27:55 PM, 22/DECEMBER/2020 5:09:02 PM, 26/MARCH/2021 9:47:43 AM.
  2. ZENATANE [Suspect]
     Active Substance: ISOTRETINOIN
     Indication: PRODUCT USED FOR UNKNOWN INDICATION
     Dosage: RMA ISSUE DATE: 25/JANUARY/2021 11:30:17 AM, 23/FEBRUARY/2021 9:33:13 AM, 27/APRIL/2021 1:37:06 PM,
     Dates: start: 20210125, end: 20210723

REACTIONS (1)
  - Lipids increased [Unknown]
